FAERS Safety Report 19066575 (Version 1)
Quarter: 2021Q1

REPORT INFORMATION
  Report Type: Spontaneous
  Country: US (occurrence: US)
  Receive Date: 20210328
  Receipt Date: 20210328
  Transmission Date: 20210420
  Serious: Yes (Other)
  Sender: FDA-Public Use
  Company Number: US-TEVA-2021-US-1893707

PATIENT
  Sex: Male

DRUGS (9)
  1. PREDNISONE. [Suspect]
     Active Substance: PREDNISONE
     Indication: PNEUMOCYSTIS JIROVECII PNEUMONIA
     Route: 065
  2. PREDNISONE. [Suspect]
     Active Substance: PREDNISONE
     Indication: CENTRAL NERVOUS SYSTEM IMMUNE RECONSTITUTION INFLAMMATORY RESPONSE
  3. MARAVIROC [Concomitant]
     Active Substance: MARAVIROC
     Indication: PROGRESSIVE MULTIFOCAL LEUKOENCEPHALOPATHY
     Route: 065
  4. MARAVIROC [Concomitant]
     Active Substance: MARAVIROC
     Indication: CENTRAL NERVOUS SYSTEM IMMUNE RECONSTITUTION INFLAMMATORY RESPONSE
  5. MIRTAZAPINE. [Concomitant]
     Active Substance: MIRTAZAPINE
     Indication: PROGRESSIVE MULTIFOCAL LEUKOENCEPHALOPATHY
     Route: 065
  6. MIRTAZAPINE. [Concomitant]
     Active Substance: MIRTAZAPINE
     Indication: CENTRAL NERVOUS SYSTEM IMMUNE RECONSTITUTION INFLAMMATORY RESPONSE
  7. TRIMETHOPRIM/SULFAMETHOXAZOLE [Concomitant]
     Active Substance: SULFAMETHOXAZOLE\TRIMETHOPRIM
     Indication: PNEUMOCYSTIS JIROVECII PNEUMONIA
     Route: 065
  8. COBICISTAT/ELVITEGRAVIR/EMTRICITABINE/TENOFOVIR?ALAFENAMIDE [Suspect]
     Active Substance: COBICISTAT\ELVITEGRAVIR\EMTRICITABINE\TENOFOVIR ALAFENAMIDE FUMARATE
     Indication: ACQUIRED IMMUNODEFICIENCY SYNDROME
     Route: 065
  9. PREDNISONE. [Suspect]
     Active Substance: PREDNISONE
     Indication: PROGRESSIVE MULTIFOCAL LEUKOENCEPHALOPATHY

REACTIONS (5)
  - Unmasking of previously unidentified disease [Recovered/Resolved]
  - Central nervous system immune reconstitution inflammatory response [Recovered/Resolved]
  - Rebound effect [Recovering/Resolving]
  - Progressive multifocal leukoencephalopathy [Recovered/Resolved]
  - Pathogen resistance [Unknown]
